FAERS Safety Report 5792394-X (Version None)
Quarter: 2008Q2

REPORT INFORMATION
  Report Type: 
  Country: None (occurrence: None)
  Receive Date: 20080626
  Receipt Date: 20080425
  Transmission Date: 20081010
  Serious: No
  Sender: FDA-Public Use
  Company Number: US-ASTRAZENECA-2008UW08441

PATIENT
  Age: 80 Year
  Sex: Female

DRUGS (10)
  1. PULMICORT RESPULES [Suspect]
     Indication: CHRONIC OBSTRUCTIVE PULMONARY DISEASE
     Route: 055
     Dates: start: 20080301
  2. PULMICORT RESPULES [Suspect]
     Indication: ASTHMA
     Route: 055
     Dates: start: 20080301
  3. PULMICORT RESPULES [Suspect]
     Indication: BRONCHITIS CHRONIC
     Route: 055
     Dates: start: 20080301
  4. PROZAC [Concomitant]
  5. CLONOPIN [Concomitant]
  6. LASIX [Concomitant]
  7. REMERON [Concomitant]
  8. LUNESTA [Concomitant]
  9. POTASSIUM CHLORIDE [Concomitant]
  10. XOPENEX [Concomitant]

REACTIONS (2)
  - DYSPHONIA [None]
  - VISUAL DISTURBANCE [None]
